FAERS Safety Report 10949922 (Version 1)
Quarter: 2015Q1

REPORT INFORMATION
  Report Type: Spontaneous
  Country: US (occurrence: None)
  Receive Date: 20150226
  Receipt Date: 20150226
  Transmission Date: 20150721
  Serious: Yes (Other)
  Sender: FDA-Public Use
  Company Number: 2013TUS000136

PATIENT
  Age: 59 Year

DRUGS (1)
  1. PREVACID [Suspect]
     Active Substance: LANSOPRAZOLE

REACTIONS (4)
  - Skull fracture [None]
  - Malaise [None]
  - Balance disorder [None]
  - Fatigue [None]
